FAERS Safety Report 8188671-8 (Version None)
Quarter: 2012Q1

REPORT INFORMATION
  Report Type: 
  Country: None (occurrence: None)
  Receive Date: 20120306
  Receipt Date: 20120223
  Transmission Date: 20120608
  Serious: Yes (Hospitalization)
  Sender: FDA-Public Use
  Company Number: US-ELI_LILLY_AND_COMPANY-US201008006178

PATIENT
  Sex: Female

DRUGS (5)
  1. ASPIRIN [Concomitant]
  2. FORTEO [Suspect]
     Indication: OSTEOPOROSIS
     Dosage: 20 UG, DAILY (1/D)
     Route: 065
  3. FORTEO [Suspect]
     Dosage: 20 UG, DAILY (1/D)
     Route: 065
  4. FORTEO [Suspect]
     Dosage: 20 UG, DAILY (1/D)
     Route: 065
  5. ALLERGY MEDICATION [Concomitant]

REACTIONS (11)
  - SKIN LESION [None]
  - STAPHYLOCOCCAL INFECTION [None]
  - COUGH [None]
  - LOWER LIMB FRACTURE [None]
  - INJECTION SITE HAEMATOMA [None]
  - BRONCHITIS [None]
  - HOSPITALISATION [None]
  - FALL [None]
  - DRUG DOSE OMISSION [None]
  - CONTUSION [None]
  - MALAISE [None]
